FAERS Safety Report 21027416 (Version 1)
Quarter: 2022Q2

REPORT INFORMATION
  Report Type: Spontaneous
  Country: US (occurrence: None)
  Receive Date: 20220629
  Receipt Date: 20220629
  Transmission Date: 20220720
  Serious: No
  Sender: FDA-Public Use
  Company Number: None

PATIENT
  Age: 63 Year
  Sex: Male
  Weight: 66.15 kg

DRUGS (17)
  1. PROCRIT [Suspect]
     Active Substance: ERYTHROPOIETIN
     Indication: Myelodysplastic syndrome
     Dosage: OTHER QUANTITY : 10 ML;?OTHER FREQUENCY : 10 ML EVERY WEEK;?
     Route: 058
  2. LISINOPRIL [Concomitant]
     Active Substance: LISINOPRIL
  3. PROCRIT [Concomitant]
     Active Substance: ERYTHROPOIETIN
  4. PEPCID [Concomitant]
     Active Substance: FAMOTIDINE
  5. CYANOCOBALAMIN [Concomitant]
     Active Substance: CYANOCOBALAMIN
  6. COENZYME Q10 [Concomitant]
     Active Substance: DIETARY SUPPLEMENT\UBIDECARENONE
  7. ZINC [Concomitant]
     Active Substance: ZINC
  8. SELENIUM [Concomitant]
     Active Substance: SELENIUM
  9. multivitamin (centrum) [Concomitant]
  10. VITAMIN D [Concomitant]
     Active Substance: VITAMIN D NOS
  11. VITAMIN C [Concomitant]
     Active Substance: ASCORBIC ACID
  12. DIETARY SUPPLEMENT\RESVERATROL [Concomitant]
     Active Substance: DIETARY SUPPLEMENT\RESVERATROL
  13. FISH OIL [Concomitant]
     Active Substance: FISH OIL
  14. ACETYLCYSTEINE [Concomitant]
     Active Substance: ACETYLCYSTEINE
  15. LEVOMEFOLIC ACID [Concomitant]
     Active Substance: LEVOMEFOLIC ACID
  16. ECOTRIN [Concomitant]
     Active Substance: ASPIRIN
  17. vitamin B12 [Concomitant]

REACTIONS (6)
  - Anaemia [None]
  - Platelet count decreased [None]
  - Neutrophil count decreased [None]
  - Sensory disturbance [None]
  - Product storage error [None]
  - Product quality issue [None]

NARRATIVE: CASE EVENT DATE: 20200101
